FAERS Safety Report 25106050 (Version 1)
Quarter: 2025Q1

REPORT INFORMATION
  Report Type: Spontaneous
  Country: US (occurrence: None)
  Receive Date: 20250320
  Receipt Date: 20250320
  Transmission Date: 20250409
  Serious: Yes (Life-Threatening, Hospitalization)
  Sender: FDA-CTU
  Company Number: None

PATIENT
  Age: 94 Year
  Sex: Male

DRUGS (1)
  1. APIXABAN [Suspect]
     Active Substance: APIXABAN
     Indication: Atrial fibrillation
     Dosage: FREQUENCY : TWICE A DAY;?

REACTIONS (6)
  - Gastrointestinal haemorrhage [None]
  - Fatigue [None]
  - Dyspnoea [None]
  - Haemoglobin decreased [None]
  - Faeces soft [None]
  - Angiodysplasia [None]

NARRATIVE: CASE EVENT DATE: 20241014
